FAERS Safety Report 4831383-6 (Version None)
Quarter: 2005Q4

REPORT INFORMATION
  Report Type: 
  Country: None (occurrence: None)
  Receive Date: 20051118
  Receipt Date: 20050512
  Transmission Date: 20060501
  Serious: Yes (Hospitalization)
  Sender: FDA-Public Use
  Company Number: FR-GLAXOSMITHKLINE-B0381171A

PATIENT
  Age: 60 Year
  Sex: Female
  Weight: 71 kg

DRUGS (6)
  1. ZINNAT [Suspect]
     Indication: SINUSITIS
     Dosage: 250MG TWICE PER DAY
     Route: 048
     Dates: start: 20050429, end: 20050506
  2. BIOCALYPTOL [Concomitant]
     Indication: SINUSITIS
     Route: 065
     Dates: start: 20050428
  3. ACETAMINOPHEN [Concomitant]
     Route: 065
     Dates: start: 20050428
  4. EUTHYRAL [Concomitant]
     Indication: HYPOTHYROIDISM
     Dosage: .5TAB PER DAY
     Route: 048
     Dates: start: 19940101
  5. JOSACINE [Concomitant]
     Indication: PNEUMONIA
     Route: 048
     Dates: start: 20050511
  6. DEDROGYL [Concomitant]
     Indication: CALCIUM DEFICIENCY
     Dosage: 10DROP PER DAY
     Dates: start: 19940101

REACTIONS (5)
  - ANGIONEUROTIC OEDEMA [None]
  - INFECTION [None]
  - PRURITUS [None]
  - PRURITUS GENERALISED [None]
  - TOXIC SKIN ERUPTION [None]
